FAERS Safety Report 21943571 (Version 2)
Quarter: 2023Q1

REPORT INFORMATION
  Report Type: Spontaneous
  Country: US (occurrence: None)
  Receive Date: 20230202
  Receipt Date: 20230316
  Transmission Date: 20230418
  Serious: No
  Sender: FDA-Public Use
  Company Number: 2023A016714

PATIENT
  Sex: Male
  Weight: 81.6 kg

DRUGS (2)
  1. BUDESONIDE\FORMOTEROL\GLYCOPYRRONIUM [Suspect]
     Active Substance: BUDESONIDE\FORMOTEROL\GLYCOPYRRONIUM
     Indication: Chronic obstructive pulmonary disease
     Dosage: 160/9/4.8 MCG, 2 INHALATIONS TWO TIMES A DAY
     Route: 055
     Dates: start: 20230113
  2. SYMBICORT [Suspect]
     Active Substance: BUDESONIDE\FORMOTEROL FUMARATE DIHYDRATE
     Indication: Chronic obstructive pulmonary disease
     Dosage: 160/4.5 MCG, 2 INHALATIONS TWO TIMES A DAY
     Route: 055

REACTIONS (5)
  - Drug dependence [Unknown]
  - Device use issue [Unknown]
  - Incorrect dose administered by device [Unknown]
  - Intentional product use issue [Unknown]
  - Product delivery mechanism issue [Unknown]
